FAERS Safety Report 8103620-6 (Version None)
Quarter: 2012Q1

REPORT INFORMATION
  Report Type: 
  Country: None (occurrence: None)
  Receive Date: 20120201
  Receipt Date: 20120126
  Transmission Date: 20120608
  Serious: Yes (Death, Hospitalization, Other)
  Sender: FDA-Public Use
  Company Number: DE-PFIZER INC-2009307837

PATIENT
  Age: 68 Year
  Sex: Male
  Weight: 63.5 kg

DRUGS (5)
  1. SIMVASTATIN [Suspect]
     Indication: DYSLIPIDAEMIA
     Dosage: 20 MG, 1X/DAY
     Route: 048
     Dates: start: 20090101, end: 20090701
  2. ACETYLSALICYLIC ACID SRT [Suspect]
     Indication: CORONARY ARTERY DISEASE
     Dosage: 100 MG, 1X/DAY
     Route: 048
     Dates: start: 20010101, end: 20090806
  3. PREDNISOLONE [Suspect]
     Indication: DIARRHOEA
     Dosage: 10 MG, 1X/DAY
     Route: 048
     Dates: start: 20060101, end: 20090809
  4. RAMIPRIL [Suspect]
     Indication: HYPERTENSION
     Dosage: 10 MG, 1X/DAY
     Route: 048
     Dates: start: 20020101, end: 20090809
  5. TAMSULOSIN [Concomitant]
     Indication: BENIGN PROSTATIC HYPERPLASIA
     Dosage: 1 DF, 1X/DAY
     Route: 048
     Dates: end: 20090601

REACTIONS (3)
  - HEPATIC HAEMORRHAGE [None]
  - COAGULOPATHY [None]
  - ACUTE HEPATIC FAILURE [None]
